FAERS Safety Report 11113442 (Version 1)
Quarter: 2015Q2

REPORT INFORMATION
  Report Type: Spontaneous
  Country: CZ (occurrence: None)
  Receive Date: 20150512
  Receipt Date: 20150512
  Transmission Date: 20150821
  Serious: Yes (Life-Threatening, Hospitalization)
  Sender: FDA-Public Use
  Company Number: NSR_02079_2015

PATIENT
  Age: 52 Year
  Sex: Female

DRUGS (6)
  1. MOXONIDINE [Concomitant]
     Active Substance: MOXONIDINE
  2. HYDROCHLOROTHIAZIDE. [Concomitant]
     Active Substance: HYDROCHLOROTHIAZIDE
  3. BETAXOLOL [Concomitant]
     Active Substance: BETAXOLOL
  4. TELMISARTAN. [Concomitant]
     Active Substance: TELMISARTAN
  5. CETIRIZINE [Concomitant]
     Active Substance: CETIRIZINE HYDROCHLORIDE
  6. ALLOPURINOL (ALLOPURINOL) [Suspect]
     Active Substance: ALLOPURINOL
     Indication: HYPERURICAEMIA

REACTIONS (1)
  - Drug reaction with eosinophilia and systemic symptoms [None]
